FAERS Safety Report 6814921-3 (Version None)
Quarter: 2010Q3

REPORT INFORMATION
  Report Type: 
  Country: None (occurrence: None)
  Receive Date: 20100702
  Receipt Date: 20100623
  Transmission Date: 20110219
  Serious: Yes (Other)
  Sender: FDA-Public Use
  Company Number: DE-ROCHE-711984

PATIENT
  Age: 73 Year
  Sex: Female

DRUGS (1)
  1. BONIVA [Suspect]
     Indication: PRODUCT USED FOR UNKNOWN INDICATION
     Dosage: LAST APPLICATION PRIOR TO EVENT IN DEC-2009
     Route: 042
     Dates: start: 20050101

REACTIONS (2)
  - DUODENAL ULCER [None]
  - GASTRITIS [None]
